FAERS Safety Report 6077115-8 (Version None)
Quarter: 2009Q1

REPORT INFORMATION
  Report Type: 
  Country: None (occurrence: None)
  Receive Date: 20090213
  Receipt Date: 20090210
  Transmission Date: 20090719
  Serious: Yes (Death, Other)
  Sender: FDA-Public Use
  Company Number: PHHY2009JP05089

PATIENT
  Age: 39 Year
  Sex: Female

DRUGS (8)
  1. FEMARA [Suspect]
     Indication: BREAST CANCER
     Dosage: 2.5 MG, QD
     Route: 048
     Dates: start: 20081212
  2. PACLITAXEL [Suspect]
     Dosage: UNK
     Dates: start: 20070928, end: 20081104
  3. AVASTIN [Suspect]
     Indication: BREAST CANCER
     Dosage: UNK
     Route: 042
     Dates: start: 20070928, end: 20081104
  4. RINDERON [Suspect]
     Indication: MALAISE
     Dosage: 1 MG/DAY
     Route: 048
     Dates: start: 20081122
  5. FUROSEMIDE [Suspect]
     Indication: OEDEMA
     Dosage: 20 MG/DAY
     Route: 048
     Dates: start: 20070928, end: 20081104
  6. ZOLADEX [Suspect]
     Indication: BREAST CANCER
     Dosage: UNK
     Route: 058
     Dates: start: 20081212
  7. MOHRUS [Concomitant]
     Indication: ARTHRALGIA
     Dosage: UNK
     Dates: start: 20081212
  8. FULMETA [Concomitant]
     Indication: PRURITUS
     Dosage: UNK
     Dates: start: 20070928

REACTIONS (3)
  - INTERSTITIAL LUNG DISEASE [None]
  - MYOCARDIAL ISCHAEMIA [None]
  - SCLERODERMA [None]
